FAERS Safety Report 5256486-6 (Version None)
Quarter: 2007Q1

REPORT INFORMATION
  Report Type: 
  Country: None (occurrence: None)
  Receive Date: 20070306
  Receipt Date: 20070227
  Transmission Date: 20070707
  Serious: Yes (Life-Threatening, Hospitalization)
  Sender: FDA-Public Use
  Company Number: NL-GLAXOSMITHKLINE-B0458145A

PATIENT
  Age: 61 Year
  Sex: Male
  Weight: 88 kg

DRUGS (5)
  1. FLIXONASE [Suspect]
     Indication: RHINITIS ALLERGIC
     Dosage: 50MCG TWICE PER DAY
     Route: 045
     Dates: start: 20070110, end: 20070120
  2. ASCAL [Concomitant]
     Dosage: 100MG PER DAY
     Route: 048
     Dates: start: 20030203
  3. METFORMIN HCL [Concomitant]
     Dosage: 1000MG PER DAY
     Route: 048
     Dates: start: 20010101
  4. LIPITOR [Concomitant]
     Dosage: 20MG PER DAY
     Route: 048
     Dates: start: 20030203
  5. ENALAPRIL MALEATE [Concomitant]
     Dosage: 5MG PER DAY
     Route: 048
     Dates: start: 20061001

REACTIONS (3)
  - BLOOD PRESSURE DECREASED [None]
  - HYPERSENSITIVITY [None]
  - SHOCK [None]
